FAERS Safety Report 14603290 (Version 7)
Quarter: 2018Q3

REPORT INFORMATION
  Report Type: Spontaneous
  Country: ES (occurrence: ES)
  Receive Date: 20180306
  Receipt Date: 20180914
  Transmission Date: 20181010
  Serious: Yes (Other)
  Sender: FDA-Public Use
  Company Number: PHHY2018ES021558

PATIENT
  Age: 60 Year
  Sex: Male

DRUGS (20)
  1. IMUREL [Suspect]
     Active Substance: AZATHIOPRINE SODIUM
     Indication: IMMUNODEFICIENCY COMMON VARIABLE
  2. ADALIMUMAB [Suspect]
     Active Substance: ADALIMUMAB
     Indication: IMMUNODEFICIENCY COMMON VARIABLE
  3. MESALAZINE [Suspect]
     Active Substance: MESALAMINE
     Indication: GASTROINTESTINAL FISTULA
  4. INFLIXIMAB [Suspect]
     Active Substance: INFLIXIMAB
     Indication: GASTROINTESTINAL FISTULA
  5. ADALIMUMAB [Suspect]
     Active Substance: ADALIMUMAB
     Indication: GASTROINTESTINAL FISTULA
  6. ADALIMUMAB [Suspect]
     Active Substance: ADALIMUMAB
     Indication: PSORIASIS
  7. USTEKINUMAB [Concomitant]
     Active Substance: USTEKINUMAB
     Indication: INFLAMMATORY BOWEL DISEASE
     Dosage: 90 MG, Q8WK
     Route: 058
     Dates: start: 2014
  8. GRANULOCYTE COLONY STIMULATING FACTOR [Suspect]
     Active Substance: GRANULOCYTE COLONY-STIMULATING FACTOR NOS
     Indication: INFLAMMATORY BOWEL DISEASE
     Route: 065
  9. INFLIXIMAB [Suspect]
     Active Substance: INFLIXIMAB
     Indication: INFLAMMATORY BOWEL DISEASE
  10. FILGRASTIM [Suspect]
     Active Substance: FILGRASTIM
     Indication: INFLAMMATORY BOWEL DISEASE
     Dosage: UNKNOWN DOSE
     Route: 065
  11. IMUREL [Suspect]
     Active Substance: AZATHIOPRINE SODIUM
     Indication: INFLAMMATORY BOWEL DISEASE
     Route: 065
  12. USTEKINUMAB [Concomitant]
     Active Substance: USTEKINUMAB
     Indication: GASTROINTESTINAL FISTULA
     Dosage: 180 MG, UNK
     Route: 058
  13. BUDESONIDE. [Suspect]
     Active Substance: BUDESONIDE
     Indication: GASTROINTESTINAL FISTULA
  14. ADALIMUMAB [Suspect]
     Active Substance: ADALIMUMAB
     Indication: INFLAMMATORY BOWEL DISEASE
     Dosage: 40 MG, QW
     Route: 065
     Dates: start: 201410
  15. METHYLPREDNISOLONE. [Suspect]
     Active Substance: METHYLPREDNISOLONE
     Indication: INFLAMMATORY BOWEL DISEASE
     Route: 065
  16. USTEKINUMAB [Concomitant]
     Active Substance: USTEKINUMAB
     Indication: IMMUNODEFICIENCY COMMON VARIABLE
  17. BUDESONIDE. [Suspect]
     Active Substance: BUDESONIDE
     Indication: INFLAMMATORY BOWEL DISEASE
     Dosage: UNK
     Route: 065
  18. INFLIXIMAB [Suspect]
     Active Substance: INFLIXIMAB
     Indication: IMMUNODEFICIENCY COMMON VARIABLE
     Dosage: UNK
     Route: 042
  19. MESALAZINE [Suspect]
     Active Substance: MESALAMINE
     Indication: INFLAMMATORY BOWEL DISEASE
     Route: 065
  20. MESALAZINE [Suspect]
     Active Substance: MESALAMINE
     Indication: IMMUNODEFICIENCY COMMON VARIABLE

REACTIONS (13)
  - Gastroenteritis clostridial [Recovered/Resolved]
  - Drug effect incomplete [Unknown]
  - Campylobacter gastroenteritis [Recovered/Resolved]
  - Fistula [Recovered/Resolved]
  - Drug ineffective for unapproved indication [Unknown]
  - Off label use [Unknown]
  - Periumbilical abscess [Recovered/Resolved]
  - Intestinal perforation [Recovered/Resolved]
  - Intestinal fistula [Recovered/Resolved]
  - Cytomegalovirus enteritis [Recovered/Resolved]
  - Perforation [Recovered/Resolved]
  - Small intestinal obstruction [Recovered/Resolved]
  - Drug ineffective [Unknown]

NARRATIVE: CASE EVENT DATE: 201410
